FAERS Safety Report 8623151-4 (Version None)
Quarter: 2012Q3

REPORT INFORMATION
  Report Type: 
  Country: None (occurrence: None)
  Receive Date: 20120827
  Receipt Date: 20120820
  Transmission Date: 20120928
  Serious: Yes (Other)
  Sender: FDA-Public Use
  Company Number: US-JNJFOC-20120810795

PATIENT
  Sex: Male

DRUGS (1)
  1. NEOSPORIN [Suspect]
     Indication: BLISTER
     Route: 061

REACTIONS (2)
  - OFF LABEL USE [None]
  - TESTICULAR HAEMORRHAGE [None]
